FAERS Safety Report 25967180 (Version 1)
Quarter: 2025Q4

REPORT INFORMATION
  Report Type: Report from Study
  Country: EU (occurrence: EU)
  Receive Date: 20251028
  Receipt Date: 20251028
  Transmission Date: 20260117
  Serious: Yes (Hospitalization, Other)
  Sender: SANOFI AVENTIS
  Company Number: EU-SA-2025SA149825

PATIENT
  Age: 14 Year
  Sex: Male

DRUGS (2)
  1. BELUMOSUDIL MESYLATE [Suspect]
     Active Substance: BELUMOSUDIL MESYLATE
     Indication: Chronic graft versus host disease
     Dosage: UNK
     Dates: start: 20241218, end: 20250526
  2. BELUMOSUDIL MESYLATE [Suspect]
     Active Substance: BELUMOSUDIL MESYLATE
     Dosage: UNK
     Dates: start: 20241218

REACTIONS (3)
  - Pancreatitis acute [Unknown]
  - Abdominal pain [Unknown]
  - Disease progression [Unknown]

NARRATIVE: CASE EVENT DATE: 20250512
